FAERS Safety Report 16811914 (Version 1)
Quarter: 2019Q3

REPORT INFORMATION
  Report Type: Spontaneous
  Country: US (occurrence: US)
  Receive Date: 20190916
  Receipt Date: 20190916
  Transmission Date: 20191005
  Serious: Yes (Life-Threatening, Other)
  Sender: FDA-Public Use
  Company Number: US-RISING PHARMACEUTICALS, INC.-2019RIS00491

PATIENT
  Age: 46 Year
  Sex: Female

DRUGS (1)
  1. MIDODRINE HYDROCHLORIDE. [Suspect]
     Active Substance: MIDODRINE HYDROCHLORIDE
     Indication: INTENTIONAL SELF-INJURY
     Dosage: APPROXIMATELY 4--50 (5 MG) TABLETS
     Route: 048

REACTIONS (6)
  - Nodal arrhythmia [Unknown]
  - Hypertension [Unknown]
  - Chest pain [Unknown]
  - Headache [Unknown]
  - Intentional self-injury [Unknown]
  - Overdose [Unknown]
